FAERS Safety Report 18213723 (Version 2)
Quarter: 2020Q3

REPORT INFORMATION
  Report Type: Spontaneous
  Country: JP (occurrence: JP)
  Receive Date: 20200831
  Receipt Date: 20200908
  Transmission Date: 20201103
  Serious: Yes (Hospitalization, Other)
  Sender: FDA-Public Use
  Company Number: JP-SHIRE-JP202027867AA

PATIENT
  Age: 75 Year
  Sex: Female

DRUGS (1)
  1. AGRYLIN [Suspect]
     Active Substance: ANAGRELIDE HYDROCHLORIDE
     Indication: ESSENTIAL THROMBOCYTHAEMIA
     Dosage: UNK
     Route: 048

REACTIONS (4)
  - Fall [Unknown]
  - Cerebral infarction [Unknown]
  - Blood pressure increased [Unknown]
  - Monoplegia [Unknown]

NARRATIVE: CASE EVENT DATE: 20200801
